FAERS Safety Report 11645383 (Version 1)
Quarter: 2015Q4

REPORT INFORMATION
  Report Type: Spontaneous
  Country: US (occurrence: US)
  Receive Date: 20151020
  Receipt Date: 20151020
  Transmission Date: 20160304
  Serious: Yes (Other)
  Sender: FDA-Public Use
  Company Number: US-BAYER-2015-444636

PATIENT
  Age: 63 Year
  Sex: Female
  Weight: 48.53 kg

DRUGS (1)
  1. AFRIN NO DRIP SEVERE CONGESTION [Suspect]
     Active Substance: OXYMETAZOLINE HYDROCHLORIDE
     Indication: NASAL CONGESTION
     Dosage: 1 DF, BID
     Route: 055

REACTIONS (4)
  - Product use issue [None]
  - Drug dependence [None]
  - Therapeutic response unexpected [None]
  - Dizziness [None]

NARRATIVE: CASE EVENT DATE: 20151011
